FAERS Safety Report 9330330 (Version 1)
Quarter: 2013Q2

REPORT INFORMATION
  Report Type: Spontaneous
  Country: US (occurrence: US)
  Receive Date: 20130605
  Receipt Date: 20130605
  Transmission Date: 20140414
  Serious: Yes (Other)
  Sender: FDA-Public Use
  Company Number: US-ROCHE-1054358

PATIENT
  Age: 30 Year
  Sex: Female

DRUGS (5)
  1. XOLAIR [Suspect]
     Indication: ASTHMA
     Route: 058
     Dates: start: 201004
  2. ATROVENT [Concomitant]
     Route: 055
  3. ALBUTEROL INHALER [Concomitant]
     Indication: ASTHMA
     Route: 055
     Dates: start: 201007
  4. ALVESCO [Concomitant]
     Indication: ASTHMA
     Route: 055
     Dates: start: 201007, end: 201106
  5. PULMICORT INHALER [Concomitant]
     Indication: ASTHMA
     Route: 055
     Dates: start: 20120328

REACTIONS (2)
  - Abortion spontaneous [Unknown]
  - Exposure during pregnancy [Unknown]
